FAERS Safety Report 9758518 (Version 1)
Quarter: 2013Q4

REPORT INFORMATION
  Report Type: Spontaneous
  Country: US (occurrence: None)
  Receive Date: 20131216
  Receipt Date: 20131216
  Transmission Date: 20140711
  Serious: No
  Sender: FDA-Public Use
  Company Number: CABO-13002668

PATIENT
  Age: 73 Year
  Sex: Male

DRUGS (3)
  1. COMETRIQ (CABOZANTINIB) CAPSULE [Suspect]
     Dosage: 100MG, QD, ORAL
     Dates: start: 20130405, end: 20130506
  2. PREDNISONE [Concomitant]
  3. PROMETHAZINE [Concomitant]

REACTIONS (1)
  - Somnolence [None]
